FAERS Safety Report 10470527 (Version 5)
Quarter: 2016Q1

REPORT INFORMATION
  Report Type: Report from Study
  Country: AU (occurrence: AU)
  Receive Date: 20140923
  Receipt Date: 20160322
  Transmission Date: 20160525
  Serious: Yes (Other)
  Sender: FDA-Public Use
  Company Number: AT-ACTELION-A-CH2014-105460

PATIENT
  Age: 16 Year
  Sex: Female

DRUGS (1)
  1. ZAVESCA [Suspect]
     Active Substance: MIGLUSTAT
     Indication: NIEMANN-PICK DISEASE
     Dosage: 500 MG, UNK
     Route: 048
     Dates: start: 20070911

REACTIONS (4)
  - Electroencephalogram abnormal [Unknown]
  - Seizure [Unknown]
  - Cognitive disorder [Unknown]
  - Staring [Unknown]

NARRATIVE: CASE EVENT DATE: 200801
